FAERS Safety Report 4890934-6 (Version None)
Quarter: 2005Q4

REPORT INFORMATION
  Report Type: 
  Country: None (occurrence: None)
  Receive Date: 20051220
  Receipt Date: 20051110
  Transmission Date: 20060501
  Serious: Yes (Other)
  Sender: FDA-Public Use
  Company Number: 424656

PATIENT
  Sex: Female

DRUGS (3)
  1. BONIVA [Suspect]
     Indication: OSTEOPOROSIS
     Dates: start: 20051102
  2. CELLCEPT [Concomitant]
  3. STEROID (STEROID NOS) [Concomitant]

REACTIONS (2)
  - BLISTER [None]
  - PAIN IN EXTREMITY [None]
